FAERS Safety Report 8816388 (Version 1)
Quarter: 2012Q4

REPORT INFORMATION
  Report Type: Spontaneous
  Country: US (occurrence: None)
  Receive Date: 20120928
  Receipt Date: 20120928
  Transmission Date: 20130627
  Serious: Yes (Other)
  Sender: FDA-Public Use
  Company Number: None

PATIENT
  Age: 28 Year
  Sex: Female

DRUGS (1)
  1. CERVIDIL [Suspect]
     Indication: LABOR INDUCTION

REACTIONS (11)
  - Vomiting [None]
  - Diarrhoea [None]
  - Fatigue [None]
  - Dehydration [None]
  - Exposure during pregnancy [None]
  - Disorientation [None]
  - Uterine atony [None]
  - Precipitate labour [None]
  - Postpartum haemorrhage [None]
  - Hypovolaemic shock [None]
  - Forceps delivery [None]
